FAERS Safety Report 9406459 (Version 2)
Quarter: 2013Q3

REPORT INFORMATION
  Report Type: Spontaneous
  Country: US (occurrence: US)
  Receive Date: 20130718
  Receipt Date: 20130902
  Transmission Date: 20140515
  Serious: Yes (Other)
  Sender: FDA-Public Use
  Company Number: US-AMGEN-USASP2013050222

PATIENT
  Age: 72 Year
  Sex: Female
  Weight: 97.5 kg

DRUGS (6)
  1. ENBREL [Suspect]
     Indication: RHEUMATOID ARTHRITIS
     Dosage: 50 MG, QWK
     Route: 058
     Dates: start: 2002, end: 2011
  2. CELEBREX [Suspect]
     Indication: ARTHRALGIA
     Dosage: 200 MG, BID
     Route: 048
  3. PREMARIN [Suspect]
     Indication: PRODUCT USED FOR UNKNOWN INDICATION
     Dosage: 045 MG, QD
     Route: 065
     Dates: end: 201211
  4. REMICADE [Suspect]
     Indication: RHEUMATOID ARTHRITIS
     Dosage: UNK
     Route: 042
     Dates: start: 2000, end: 2002
  5. CIMZIA [Suspect]
     Indication: RHEUMATOID ARTHRITIS
     Dosage: 200 MG, Q2WK
     Route: 058
     Dates: start: 2011, end: 2012
  6. METHOTREXATE [Concomitant]
     Dosage: UNK
     Dates: start: 2000, end: 2012

REACTIONS (3)
  - B-cell lymphoma [Unknown]
  - Pain [Unknown]
  - Arthralgia [Unknown]
